FAERS Safety Report 24285111 (Version 1)
Quarter: 2024Q3

REPORT INFORMATION
  Report Type: Spontaneous
  Country: US (occurrence: None)
  Receive Date: 20240901
  Receipt Date: 20240901
  Transmission Date: 20241017
  Serious: Yes (Hospitalization)
  Sender: Public
  Company Number: None

PATIENT
  Sex: Female

DRUGS (2)
  1. TERIPARATIDE ACETATE [Suspect]
     Active Substance: TERIPARATIDE ACETATE
     Indication: Osteoporosis
     Dosage: 20 MCG DAILY SQ
     Route: 058
     Dates: start: 202408
  2. FORTEO [Concomitant]

REACTIONS (3)
  - Fall [None]
  - Osteoporosis [None]
  - Spinal fracture [None]
